FAERS Safety Report 24059050 (Version 1)
Quarter: 2024Q3

REPORT INFORMATION
  Report Type: Spontaneous
  Country: CA (occurrence: CA)
  Receive Date: 20240708
  Receipt Date: 20240708
  Transmission Date: 20241017
  Serious: Yes (Congenital Anomaly)
  Sender: Haleon PLC
  Company Number: CA-HALEON-2183611

PATIENT
  Sex: Female

DRUGS (118)
  1. DICLOFENAC DIETHYLAMINE [Suspect]
     Active Substance: DICLOFENAC DIETHYLAMINE
     Indication: Exposure during pregnancy
     Route: 064
  2. DICLOFENAC DIETHYLAMINE [Suspect]
     Active Substance: DICLOFENAC DIETHYLAMINE
     Indication: Rheumatoid arthritis
     Route: 064
  3. CETIRIZINE HYDROCHLORIDE [Suspect]
     Active Substance: CETIRIZINE HYDROCHLORIDE
     Indication: Exposure during pregnancy
     Route: 064
  4. CETIRIZINE HYDROCHLORIDE [Suspect]
     Active Substance: CETIRIZINE HYDROCHLORIDE
     Indication: Rheumatoid arthritis
  5. HYDROCORTISONE [Suspect]
     Active Substance: HYDROCORTISONE\HYDROCORTISONE ACETATE
     Indication: Exposure during pregnancy
     Route: 064
  6. PANADOL [Suspect]
     Active Substance: ACETAMINOPHEN
     Indication: Exposure during pregnancy
     Route: 064
  7. PANADOL [Suspect]
     Active Substance: ACETAMINOPHEN
     Indication: Rheumatoid arthritis
  8. ACTEMRA [Suspect]
     Active Substance: TOCILIZUMAB
     Indication: Exposure during pregnancy
     Route: 064
  9. ACTEMRA [Suspect]
     Active Substance: TOCILIZUMAB
     Indication: Rheumatoid arthritis
     Route: 064
  10. ACTEMRA [Suspect]
     Active Substance: TOCILIZUMAB
     Route: 064
  11. ACTEMRA [Suspect]
     Active Substance: TOCILIZUMAB
     Route: 064
  12. ACTEMRA [Suspect]
     Active Substance: TOCILIZUMAB
     Route: 064
  13. ACTEMRA [Suspect]
     Active Substance: TOCILIZUMAB
     Route: 064
  14. ACTEMRA [Suspect]
     Active Substance: TOCILIZUMAB
     Route: 064
  15. ACTEMRA [Suspect]
     Active Substance: TOCILIZUMAB
     Route: 064
  16. PREDNISONE [Suspect]
     Active Substance: PREDNISONE
     Indication: Exposure during pregnancy
     Route: 064
  17. PREDNISONE [Suspect]
     Active Substance: PREDNISONE
     Indication: Rheumatoid arthritis
     Route: 064
  18. PREDNISONE [Suspect]
     Active Substance: PREDNISONE
     Route: 062
  19. PREDNISONE [Suspect]
     Active Substance: PREDNISONE
     Route: 064
  20. ARAVA [Suspect]
     Active Substance: LEFLUNOMIDE
     Indication: Exposure during pregnancy
     Route: 064
  21. ARAVA [Suspect]
     Active Substance: LEFLUNOMIDE
     Indication: Rheumatoid arthritis
  22. AZATHIOPRINE [Suspect]
     Active Substance: AZATHIOPRINE
     Indication: Exposure during pregnancy
     Route: 064
  23. AZATHIOPRINE [Suspect]
     Active Substance: AZATHIOPRINE
     Indication: Product used for unknown indication
  24. CIMZIA [Suspect]
     Active Substance: CERTOLIZUMAB PEGOL
     Indication: Exposure during pregnancy
     Route: 064
  25. CIMZIA [Suspect]
     Active Substance: CERTOLIZUMAB PEGOL
     Indication: Rheumatoid arthritis
     Route: 064
  26. CIMZIA [Suspect]
     Active Substance: CERTOLIZUMAB PEGOL
     Indication: Rheumatic fever
     Route: 064
  27. CORTISONE ACETATE [Suspect]
     Active Substance: CORTISONE ACETATE
     Indication: Exposure during pregnancy
     Route: 064
  28. CORTISONE ACETATE [Suspect]
     Active Substance: CORTISONE ACETATE
     Indication: Product used for unknown indication
  29. DESOXIMETASONE [Suspect]
     Active Substance: DESOXIMETASONE
     Indication: Exposure during pregnancy
     Route: 064
  30. DESOXIMETASONE [Suspect]
     Active Substance: DESOXIMETASONE
     Indication: Rheumatoid arthritis
     Route: 064
  31. DESOXIMETASONE [Suspect]
     Active Substance: DESOXIMETASONE
     Indication: Rheumatic fever
     Route: 064
  32. ENBREL [Suspect]
     Active Substance: BENZYL ALCOHOL\ETANERCEPT
     Indication: Exposure during pregnancy
     Route: 064
  33. ENBREL [Suspect]
     Active Substance: BENZYL ALCOHOL\ETANERCEPT
     Indication: Rheumatoid arthritis
     Route: 064
  34. ENBREL [Suspect]
     Active Substance: BENZYL ALCOHOL\ETANERCEPT
     Indication: Rheumatic fever
     Route: 064
  35. ENBREL [Suspect]
     Active Substance: BENZYL ALCOHOL\ETANERCEPT
     Route: 064
  36. FLUMETHASONE PIVALATE [Suspect]
     Active Substance: FLUMETHASONE PIVALATE
     Indication: Exposure during pregnancy
     Route: 064
  37. FOSAMAX [Suspect]
     Active Substance: ALENDRONATE SODIUM
     Indication: Exposure during pregnancy
     Route: 064
  38. HUMIRA [Suspect]
     Active Substance: ADALIMUMAB
     Indication: Exposure during pregnancy
     Route: 064
  39. HUMIRA [Suspect]
     Active Substance: ADALIMUMAB
     Indication: Rheumatoid arthritis
     Route: 064
  40. HUMIRA [Suspect]
     Active Substance: ADALIMUMAB
     Indication: Rheumatic fever
  41. METHYLPREDNISOLONE [Suspect]
     Active Substance: METHYLPREDNISOLONE
     Indication: Exposure during pregnancy
     Route: 064
  42. FOLIC ACID [Suspect]
     Active Substance: FOLIC ACID
     Indication: Exposure during pregnancy
     Route: 064
  43. FOLIC ACID [Suspect]
     Active Substance: FOLIC ACID
     Indication: Product used for unknown indication
  44. GOLD [Suspect]
     Active Substance: GOLD
     Indication: Exposure during pregnancy
     Route: 064
  45. COSENTYX [Suspect]
     Active Substance: SECUKINUMAB
     Indication: Exposure during pregnancy
     Route: 064
  46. ERELZI [Suspect]
     Active Substance: ETANERCEPT-SZZS
     Indication: Exposure during pregnancy
     Route: 064
  47. ERELZI [Suspect]
     Active Substance: ETANERCEPT-SZZS
     Indication: Product used for unknown indication
  48. RITUXIMAB [Suspect]
     Active Substance: RITUXIMAB
     Indication: Rheumatoid arthritis
     Route: 064
  49. RITUXIMAB [Suspect]
     Active Substance: RITUXIMAB
     Indication: Rheumatic fever
     Route: 064
  50. RITUXIMAB [Suspect]
     Active Substance: RITUXIMAB
     Indication: Exposure during pregnancy
     Route: 064
  51. RITUXIMAB [Suspect]
     Active Substance: RITUXIMAB
     Route: 064
  52. RITUXIMAB [Suspect]
     Active Substance: RITUXIMAB
     Route: 064
  53. RITUXIMAB [Suspect]
     Active Substance: RITUXIMAB
     Route: 064
  54. RITUXIMAB [Suspect]
     Active Substance: RITUXIMAB
     Route: 064
  55. RITUXIMAB [Suspect]
     Active Substance: RITUXIMAB
     Route: 064
  56. RITUXIMAB [Suspect]
     Active Substance: RITUXIMAB
     Route: 064
  57. HYDROXYCHLOROQUINE [Suspect]
     Active Substance: HYDROXYCHLOROQUINE
     Indication: Exposure during pregnancy
     Route: 064
  58. HYDROXYCHLOROQUINE [Suspect]
     Active Substance: HYDROXYCHLOROQUINE
     Indication: Rheumatoid arthritis
     Route: 064
  59. HYDROXYCHLOROQUINE [Suspect]
     Active Substance: HYDROXYCHLOROQUINE
     Route: 064
  60. HYDROXYCHLOROQUINE [Suspect]
     Active Substance: HYDROXYCHLOROQUINE
     Route: 064
  61. HYDROXYCHLOROQUINE [Suspect]
     Active Substance: HYDROXYCHLOROQUINE
     Route: 064
  62. HYDROXYCHLOROQUINE SULFATE [Suspect]
     Active Substance: HYDROXYCHLOROQUINE SULFATE
     Indication: Exposure during pregnancy
     Route: 064
  63. LEFLUNOMIDE [Suspect]
     Active Substance: LEFLUNOMIDE
     Indication: Exposure during pregnancy
     Route: 064
  64. LEFLUNOMIDE [Suspect]
     Active Substance: LEFLUNOMIDE
     Indication: Rheumatoid arthritis
     Route: 064
  65. LEFLUNOMIDE [Suspect]
     Active Substance: LEFLUNOMIDE
     Indication: Product used for unknown indication
     Route: 064
  66. METHOTREXATE SODIUM [Suspect]
     Active Substance: METHOTREXATE SODIUM
     Indication: Exposure during pregnancy
     Route: 064
  67. METHOTREXATE SODIUM [Suspect]
     Active Substance: METHOTREXATE SODIUM
     Indication: Rheumatoid arthritis
     Route: 064
  68. METHOTREXATE SODIUM [Suspect]
     Active Substance: METHOTREXATE SODIUM
     Route: 064
  69. METHOTREXATE SODIUM [Suspect]
     Active Substance: METHOTREXATE SODIUM
     Route: 064
  70. METHOTREXATE SODIUM [Suspect]
     Active Substance: METHOTREXATE SODIUM
     Route: 064
  71. MINOCYCLINE [Suspect]
     Active Substance: MINOCYCLINE HYDROCHLORIDE
     Indication: Exposure during pregnancy
     Route: 064
  72. MINOCYCLINE [Suspect]
     Active Substance: MINOCYCLINE HYDROCHLORIDE
     Indication: Rheumatoid arthritis
  73. MINOCYCLINE [Suspect]
     Active Substance: MINOCYCLINE HYDROCHLORIDE
     Indication: Rheumatic fever
  74. MYOCHRYSINE [Suspect]
     Active Substance: GOLD SODIUM THIOMALATE
     Indication: Exposure during pregnancy
     Route: 064
  75. MYOCHRYSINE [Suspect]
     Active Substance: GOLD SODIUM THIOMALATE
     Indication: Rheumatoid arthritis
  76. ORENCIA [Suspect]
     Active Substance: ABATACEPT
     Indication: Exposure during pregnancy
     Route: 064
  77. ORENCIA [Suspect]
     Active Substance: ABATACEPT
     Indication: Rheumatoid arthritis
     Route: 064
  78. ORENCIA [Suspect]
     Active Substance: ABATACEPT
     Indication: Rheumatic fever
     Route: 064
  79. ORENCIA [Suspect]
     Active Substance: ABATACEPT
     Route: 064
  80. ORENCIA [Suspect]
     Active Substance: ABATACEPT
     Route: 064
  81. ORENCIA [Suspect]
     Active Substance: ABATACEPT
     Route: 064
  82. ORENCIA [Suspect]
     Active Substance: ABATACEPT
     Route: 064
  83. SULFAMETHOXAZOLE AND TRIMETHOPRIM [Suspect]
     Active Substance: SULFAMETHOXAZOLE\TRIMETHOPRIM
     Indication: Exposure during pregnancy
     Route: 064
  84. SULFAMETHOXAZOLE AND TRIMETHOPRIM [Suspect]
     Active Substance: SULFAMETHOXAZOLE\TRIMETHOPRIM
     Indication: Rheumatoid arthritis
  85. SULFASALAZINE [Suspect]
     Active Substance: SULFASALAZINE
     Indication: Exposure during pregnancy
     Route: 064
  86. SULFASALAZINE [Suspect]
     Active Substance: SULFASALAZINE
     Route: 064
  87. TRAMADOL HYDROCHLORIDE [Suspect]
     Active Substance: TRAMADOL HYDROCHLORIDE
     Indication: Exposure during pregnancy
     Route: 064
  88. XELJANZ [Suspect]
     Active Substance: TOFACITINIB CITRATE
     Indication: Exposure during pregnancy
     Route: 064
  89. XELJANZ [Suspect]
     Active Substance: TOFACITINIB CITRATE
     Indication: Rheumatoid arthritis
     Route: 064
  90. XELJANZ [Suspect]
     Active Substance: TOFACITINIB CITRATE
     Indication: Rheumatic fever
     Route: 064
  91. XELJANZ [Suspect]
     Active Substance: TOFACITINIB CITRATE
     Route: 064
  92. XELJANZ [Suspect]
     Active Substance: TOFACITINIB CITRATE
     Route: 064
  93. CAFFEINE [Suspect]
     Active Substance: CAFFEINE
     Indication: Product used for unknown indication
     Route: 064
  94. CAFFEINE [Suspect]
     Active Substance: CAFFEINE
     Indication: Exposure during pregnancy
  95. STELARA [Suspect]
     Active Substance: USTEKINUMAB
     Indication: Rheumatoid arthritis
     Route: 064
  96. STELARA [Suspect]
     Active Substance: USTEKINUMAB
     Indication: Exposure during pregnancy
  97. DESOGESTREL [Concomitant]
     Active Substance: DESOGESTREL
     Indication: Product used for unknown indication
  98. NAPROXEN [Concomitant]
     Active Substance: NAPROXEN
     Indication: Product used for unknown indication
  99. PERIOGARD [Suspect]
     Active Substance: CHLORHEXIDINE GLUCONATE
     Indication: Exposure during pregnancy
     Route: 064
  100. PHTHALYLSULFATHIAZOLE [Suspect]
     Active Substance: PHTHALYLSULFATHIAZOLE
     Indication: Exposure during pregnancy
     Route: 064
  101. PSEUDOEPHEDRINE [Suspect]
     Active Substance: PSEUDOEPHEDRINE
     Indication: Exposure during pregnancy
     Route: 064
  102. REMICADE [Suspect]
     Active Substance: INFLIXIMAB
     Indication: Exposure during pregnancy
     Route: 064
  103. REMICADE [Suspect]
     Active Substance: INFLIXIMAB
     Indication: Rheumatoid arthritis
     Route: 064
  104. REMICADE [Suspect]
     Active Substance: INFLIXIMAB
     Route: 064
  105. REMICADE [Suspect]
     Active Substance: INFLIXIMAB
     Route: 064
  106. REMICADE [Suspect]
     Active Substance: INFLIXIMAB
     Route: 064
  107. SULFASALAZINE [Suspect]
     Active Substance: SULFASALAZINE
     Indication: Exposure during pregnancy
     Route: 064
  108. SULFASALAZINE [Suspect]
     Active Substance: SULFASALAZINE
     Indication: Rheumatoid arthritis
  109. SIMPONI [Suspect]
     Active Substance: GOLIMUMAB
     Indication: Exposure during pregnancy
     Route: 064
  110. SIMPONI [Suspect]
     Active Substance: GOLIMUMAB
     Indication: Rheumatoid arthritis
     Route: 064
  111. SIMPONI [Suspect]
     Active Substance: GOLIMUMAB
     Indication: Rheumatic fever
  112. SIRUKUMAB [Suspect]
     Active Substance: SIRUKUMAB
     Indication: Exposure during pregnancy
     Route: 064
  113. GOLD SODIUM THIOMALATE [Suspect]
     Active Substance: GOLD SODIUM THIOMALATE
     Indication: Exposure during pregnancy
     Route: 064
  114. STELARA [Suspect]
     Active Substance: USTEKINUMAB
     Indication: Exposure during pregnancy
     Route: 064
  115. STELARA [Suspect]
     Active Substance: USTEKINUMAB
     Indication: Rheumatoid arthritis
  116. COSENTYX [Concomitant]
     Active Substance: SECUKINUMAB
     Indication: Product used for unknown indication
  117. OTEZLA [Suspect]
     Active Substance: APREMILAST
     Indication: Exposure during pregnancy
     Route: 064
  118. OTEZLA [Suspect]
     Active Substance: APREMILAST
     Indication: Rheumatoid arthritis

REACTIONS (3)
  - Congenital anomaly [Not Recovered/Not Resolved]
  - Foetal exposure during pregnancy [Not Recovered/Not Resolved]
  - Maternal exposure during pregnancy [Not Recovered/Not Resolved]
